FAERS Safety Report 16099677 (Version 3)
Quarter: 2019Q3

REPORT INFORMATION
  Report Type: Report from Study
  Country: None (occurrence: DE)
  Receive Date: 20190321
  Receipt Date: 20190805
  Transmission Date: 20191004
  Serious: Yes (Hospitalization)
  Sender: FDA-Public Use
  Company Number: DE-ABBVIE-19K-062-2707542-00

PATIENT
  Age: 80 Year
  Sex: Female

DRUGS (3)
  1. LODOTRA [Concomitant]
     Active Substance: PREDNISONE
     Indication: PRODUCT USED FOR UNKNOWN INDICATION
  2. HUMIRA [Suspect]
     Active Substance: ADALIMUMAB
     Indication: RHEUMATOID ARTHRITIS
     Route: 058
     Dates: start: 201604
  3. SALAZOSULFAPYRIDINE [Concomitant]
     Active Substance: SULFASALAZINE
     Indication: PRODUCT USED FOR UNKNOWN INDICATION
     Dosage: DRUG STOP DATE - BETWEEN 2016 AND 2017
     Dates: start: 2016

REACTIONS (2)
  - Large intestine polyp [Recovered/Resolved]
  - Rectal polyp [Recovered/Resolved]

NARRATIVE: CASE EVENT DATE: 20190211
